FAERS Safety Report 8588482-5 (Version None)
Quarter: 2012Q3

REPORT INFORMATION
  Report Type: 
  Country: None (occurrence: None)
  Receive Date: 20120813
  Receipt Date: 20120803
  Transmission Date: 20120928
  Serious: Yes (Hospitalization)
  Sender: FDA-Public Use
  Company Number: ZA-SANOFI-AVENTIS-2012SA055644

PATIENT
  Age: 47 Year
  Sex: Female

DRUGS (9)
  1. PERINDOPRIL ERBUMINE [Concomitant]
     Indication: HYPERTENSION
     Route: 048
  2. WARFARIN SODIUM [Concomitant]
     Route: 048
  3. PROTOPAM CHLORIDE [Concomitant]
     Indication: ASTHMA
     Dosage: DOSE:30 UNIT(S)
     Route: 058
  4. APIDRA SOLOSTAR [Suspect]
     Indication: TYPE 2 DIABETES MELLITUS
     Dosage: DOSE:36 UNIT(S)
     Route: 058
     Dates: start: 20020101, end: 20120720
  5. LANTUS [Suspect]
     Indication: DEVICE THERAPY
  6. CORTISONE ACETATE [Concomitant]
     Indication: ASTHMA
     Dosage: DOSE:1 UNIT(S)
     Route: 048
  7. FLUTICASONE PROPIONATE [Concomitant]
     Indication: ASTHMA
     Dosage: 2 PUFFS PRN DOSE:2 UNIT(S)
     Route: 055
  8. THEOPHYLLINE [Concomitant]
     Indication: CHRONIC OBSTRUCTIVE PULMONARY DISEASE
     Route: 048
  9. PREDNISONE TAB [Concomitant]
     Indication: ASTHMA
     Route: 048

REACTIONS (2)
  - BLOOD GLUCOSE INCREASED [None]
  - ASTHMA [None]
